FAERS Safety Report 20136500 (Version 1)
Quarter: 2021Q4

REPORT INFORMATION
  Report Type: Spontaneous
  Country: US (occurrence: None)
  Receive Date: 20211201
  Receipt Date: 20211201
  Transmission Date: 20220303
  Serious: Yes (Disabling, Other)
  Sender: FDA-Public Use
  Company Number: None

PATIENT
  Age: 16 Year
  Sex: Female
  Weight: 54 kg

DRUGS (1)
  1. SINGULAIR [Suspect]
     Active Substance: MONTELUKAST SODIUM
     Indication: Asthma
     Dosage: FREQUENCY : AT BEDTIME;?
     Route: 048
     Dates: start: 20210611, end: 20210809

REACTIONS (5)
  - Hallucination [None]
  - Agitation [None]
  - Irritability [None]
  - Suicidal ideation [None]
  - Feeling abnormal [None]

NARRATIVE: CASE EVENT DATE: 20210919
